FAERS Safety Report 19444732 (Version 2)
Quarter: 2021Q3

REPORT INFORMATION
  Report Type: Spontaneous
  Country: DE (occurrence: DE)
  Receive Date: 20210621
  Receipt Date: 20210712
  Transmission Date: 20211014
  Serious: Yes (Other)
  Sender: FDA-Public Use
  Company Number: DE-MYLANLABS-2021M1034984

PATIENT
  Age: 62 Year
  Sex: Male

DRUGS (15)
  1. ARA?C [Suspect]
     Active Substance: CYTARABINE
     Dosage: 30 MILLIGRAM, CYCLE (30 MG INTRAVENTRICULAR ON DAY 5 IN CYCLE
     Route: 042
  2. ENDOXAN                            /00021101/ [Suspect]
     Active Substance: CYCLOPHOSPHAMIDE
     Indication: CENTRAL NERVOUS SYSTEM LYMPHOMA
     Dosage: 200 MILLIGRAM/SQ. METER, CYCLE (200 MG/M2 OVER 1 HR VIA INFUS
     Route: 042
  3. VINCRISTINE SULFATE. [Suspect]
     Active Substance: VINCRISTINE SULFATE
     Indication: CENTRAL NERVOUS SYSTEM LYMPHOMA
     Dosage: 2 MILLIGRAM, CYCLE (2 MG ON DAY 1 IN CYCL
     Route: 042
  4. METHOTREXATE. [Suspect]
     Active Substance: METHOTREXATE
     Dosage: CYCLE (5 G/M2 ON DAY 1 IN CYCLE A AND B)
     Route: 042
  5. DEXAMETHASONE. [Suspect]
     Active Substance: DEXAMETHASONE
     Dosage: 10 MILLIGRAM/SQ. METER, CYCLE (10 MG/M2 ON  DAY 1?5 IN CYCLE
     Route: 048
  6. PREDNISOLONE                       /00016204/ [Suspect]
     Active Substance: PREDNISOLONE
     Indication: CENTRAL NERVOUS SYSTEM LYMPHOMA
     Dosage: 2.5 MILLIGRAM, CYCLE (2.5 MG INTRAVENTRICULAR ON DAY 1?4 IN CYCLE A AND B, ON DAY
     Route: 042
  7. TROPISETRON [Concomitant]
     Active Substance: TROPISETRON
     Indication: PROPHYLAXIS OF NAUSEA AND VOMITING
     Dosage: UNK
  8. HOLOXAN [Suspect]
     Active Substance: IFOSFAMIDE
     Indication: CENTRAL NERVOUS SYSTEM LYMPHOMA
     Dosage: 800 MILLIGRAM/SQ. METER, CYCLE (800 MG/M2 OVER 1 HR VIA
     Route: 042
  9. MESNA. [Concomitant]
     Active Substance: MESNA
     Indication: PROPHYLAXIS
     Dosage: UNK
  10. METHOTREXATE. [Suspect]
     Active Substance: METHOTREXATE
     Indication: CENTRAL NERVOUS SYSTEM LYMPHOMA
     Dosage: 3 MILLIGRAM, CYCLE (3 MG INTRAVENTRICULAR ON DAY 1?4 IN CYCL
     Route: 042
  11. ONDANSETRON [Concomitant]
     Active Substance: ONDANSETRON
     Indication: PROPHYLAXIS OF NAUSEA AND VOMITING
     Dosage: UNK
  12. ARA?C [Suspect]
     Active Substance: CYTARABINE
     Dosage: CYCLE C, DAY 7
     Route: 050
  13. VINDESINE [Suspect]
     Active Substance: VINDESINE
     Indication: CENTRAL NERVOUS SYSTEM LYMPHOMA
     Dosage: 5 MILLIGRAM, CYCLE (5 MG ON DAY 1
     Route: 042
  14. ARA?C [Suspect]
     Active Substance: CYTARABINE
     Indication: CENTRAL NERVOUS SYSTEM LYMPHOMA
     Dosage: UNK (3 G/M2 OVER 3 HR VIA INFUSION/ 12 HR ON DAY 1 AND 2 IN CYC
     Route: 042
  15. DEXAMETHASONE. [Suspect]
     Active Substance: DEXAMETHASONE
     Indication: CENTRAL NERVOUS SYSTEM LYMPHOMA
     Dosage: 20 MILLIGRAM/SQ. METER, CYCLE (20 MG/M2 ON DAY 1?5 IN CYCLE C)
     Route: 048

REACTIONS (5)
  - Postoperative wound infection [Unknown]
  - Alopecia areata [Unknown]
  - Leukopenia [Unknown]
  - Renal disorder [Unknown]
  - Thrombocytopenia [Unknown]
